FAERS Safety Report 19285073 (Version 1)
Quarter: 2021Q2

REPORT INFORMATION
  Report Type: Spontaneous
  Country: US (occurrence: US)
  Receive Date: 20210521
  Receipt Date: 20210521
  Transmission Date: 20210717
  Serious: No
  Sender: FDA-Public Use
  Company Number: US-RADIUS HEALTH INC.-2020US001782

PATIENT
  Age: 55 Year
  Sex: Female

DRUGS (2)
  1. NANDROLONE [Suspect]
     Active Substance: NANDROLONE
     Indication: PRODUCT USED FOR UNKNOWN INDICATION
  2. TYMLOS [Suspect]
     Active Substance: ABALOPARATIDE
     Indication: OSTEOPOROSIS POSTMENOPAUSAL
     Dosage: 80 MCG, QD
     Route: 058
     Dates: start: 20200402, end: 20200427

REACTIONS (3)
  - Burning sensation [Unknown]
  - Rash pruritic [Unknown]
  - Myalgia [Unknown]

NARRATIVE: CASE EVENT DATE: 20200410
